FAERS Safety Report 4977949-4 (Version None)
Quarter: 2006Q2

REPORT INFORMATION
  Report Type: 
  Country: None (occurrence: None)
  Receive Date: 20060420
  Receipt Date: 20060329
  Transmission Date: 20061013
  Serious: Yes (Hospitalization)
  Sender: FDA-Public Use
  Company Number: US-MERCK-0604USA00016

PATIENT
  Age: 61 Year
  Sex: Male
  Weight: 100 kg

DRUGS (2)
  1. VIOXX [Suspect]
     Indication: ARTHRALGIA
     Route: 048
     Dates: start: 20001001, end: 20040404
  2. VIOXX [Suspect]
     Route: 048
     Dates: start: 20001001, end: 20040404

REACTIONS (13)
  - ACUTE CORONARY SYNDROME [None]
  - ANAEMIA POSTOPERATIVE [None]
  - ATRIAL FLUTTER [None]
  - BRONCHITIS [None]
  - CARDIAC ARREST [None]
  - CARDIOMYOPATHY [None]
  - CORONARY ARTERY DISEASE [None]
  - HYPOXIA [None]
  - INSOMNIA [None]
  - MYOCARDIAL INFARCTION [None]
  - PNEUMONITIS [None]
  - POSTOPERATIVE ILEUS [None]
  - POSTOPERATIVE THROMBOSIS [None]
